FAERS Safety Report 7367340-8 (Version None)
Quarter: 2011Q1

REPORT INFORMATION
  Report Type: 
  Country: None (occurrence: None)
  Receive Date: 20110317
  Receipt Date: 20110317
  Transmission Date: 20110831
  Serious: Yes (Other)
  Sender: FDA-Public Use
  Company Number: None

PATIENT
  Age: 54 Year
  Sex: Male
  Weight: 87.9978 kg

DRUGS (2)
  1. GOOD NEIGHBOR PHARMACY 70% ALCOHOL TRIAD GROUP, INC. [Suspect]
  2. GOOD NEIGHBOR PHARMACY 70% ALCOHOL TRIAD GROUP, INC. [Suspect]
     Indication: STERILISATION
     Dosage: ONE TIME USE
     Dates: start: 20110312, end: 20110312

REACTIONS (2)
  - PRODUCT QUALITY ISSUE [None]
  - BLISTER [None]
